FAERS Safety Report 18393760 (Version 1)
Quarter: 2020Q4

REPORT INFORMATION
  Report Type: Spontaneous
  Country: FR (occurrence: FR)
  Receive Date: 20201016
  Receipt Date: 20201016
  Transmission Date: 20210114
  Serious: Yes (Hospitalization, Other)
  Sender: FDA-Public Use
  Company Number: FR-MYLANLABS-2020M1086917

PATIENT
  Age: 37 Year
  Sex: Male

DRUGS (4)
  1. HEROIN [Suspect]
     Active Substance: DIAMORPHINE
     Indication: PRODUCT USED FOR UNKNOWN INDICATION
     Dosage: UNK NON RENSEIGNEE
     Route: 065
  2. MIRTAZAPINE. [Suspect]
     Active Substance: MIRTAZAPINE
     Indication: PRODUCT USED FOR UNKNOWN INDICATION
     Dosage: UNK NON RENSEIGNEE
     Route: 065
     Dates: start: 20200906, end: 20200906
  3. CAFFEINE CITRATE W/CODEINE PHOSPHATE/PARACETA [Suspect]
     Active Substance: ACETAMINOPHEN\CAFFEINE\CODEINE PHOSPHATE
     Indication: PRODUCT USED FOR UNKNOWN INDICATION
     Dosage: UNK NON RENSEIGNEE
     Route: 065
     Dates: start: 20200906, end: 20200906
  4. BACLOFENE [Suspect]
     Active Substance: BACLOFEN
     Indication: PRODUCT USED FOR UNKNOWN INDICATION
     Dosage: UNK NON RENSEIGNEE
     Route: 065
     Dates: start: 20200906, end: 20200906

REACTIONS (6)
  - Coma [Recovered/Resolved]
  - Toxicity to various agents [Not Recovered/Not Resolved]
  - Miosis [Recovering/Resolving]
  - Drug abuse [Not Recovered/Not Resolved]
  - Drug dependence [Unknown]
  - Electrocardiogram QT prolonged [Recovered/Resolved]

NARRATIVE: CASE EVENT DATE: 20200906
